FAERS Safety Report 4627843-3 (Version None)
Quarter: 2005Q2

REPORT INFORMATION
  Report Type: 
  Country: None (occurrence: None)
  Receive Date: 20050401
  Receipt Date: 20041105
  Transmission Date: 20051028
  Serious: No
  Sender: FDA-Public Use
  Company Number: 9245

PATIENT
  Age: 43 Year
  Sex: Male

DRUGS (5)
  1. LEUCOVORIN CALCIUM [Suspect]
     Indication: ADENOCARCINOMA
     Dosage: 120 MG FORTNIGHTLY
     Dates: start: 20030410
  2. IRINOTECAN HCL [Suspect]
     Indication: ADENOCARCINOMA
     Dosage: 360 MG FORTNIGHTLY
     Dates: start: 20030410
  3. FLUOROURACIL [Suspect]
     Indication: ADENOCARCINOMA
     Dosage: 1000 MG FORTNIGHTLY
  4. LANSOPRAZOLE [Concomitant]
  5. LOPERAMIDE HCL [Concomitant]

REACTIONS (4)
  - BLINDNESS [None]
  - CATARACT [None]
  - INTRAOCULAR PRESSURE DECREASED [None]
  - VISUAL DISTURBANCE [None]
